FAERS Safety Report 8777824 (Version 14)
Quarter: 2013Q4

REPORT INFORMATION
  Report Type: Report from Study
  Country: CA (occurrence: CA)
  Receive Date: 20120911
  Receipt Date: 20131202
  Transmission Date: 20140711
  Serious: Yes (Hospitalization, Other)
  Sender: FDA-Public Use
  Company Number: PHHY2012CA073847

PATIENT
  Age: 74 Year
  Sex: Male

DRUGS (2)
  1. ZOMETA [Suspect]
     Indication: PLASMA CELL MYELOMA
     Dosage: 3.5 MG, ONCE A MONTH
     Route: 042
     Dates: start: 20120808, end: 20130731
  2. ZOMETA [Suspect]
     Dosage: 3.5 MG, ONCE A MONTH
     Route: 042
     Dates: end: 20131127

REACTIONS (14)
  - Pulmonary embolism [Unknown]
  - Pneumonia [Unknown]
  - Full blood count abnormal [Unknown]
  - Atrial fibrillation [Unknown]
  - Blood pressure increased [Unknown]
  - Blood iron decreased [Recovering/Resolving]
  - Serum ferritin decreased [Recovering/Resolving]
  - Haemoglobin decreased [Recovering/Resolving]
  - Anaemia [Unknown]
  - Asthenia [Unknown]
  - Fatigue [Not Recovered/Not Resolved]
  - Influenza [Unknown]
  - Muscle spasms [Unknown]
  - Musculoskeletal chest pain [Unknown]
